FAERS Safety Report 4288765-3 (Version None)
Quarter: 2004Q1

REPORT INFORMATION
  Report Type: 
  Country: None (occurrence: None)
  Receive Date: 20040204
  Receipt Date: 20040122
  Transmission Date: 20041129
  Serious: Yes (Hospitalization, Other)
  Sender: FDA-Public Use
  Company Number: HQWYE537623JAN04

PATIENT
  Age: 11 Month
  Sex: Female

DRUGS (3)
  1. CHILDREN'S ADVIL [Suspect]
     Indication: PYREXIA
     Dosage: 70 MG X 4/D (ALTERNATING WITH EFFERALGAN)
     Route: 048
     Dates: start: 20020613, end: 20020616
  2. AMODEX (AMOXICILLIN TRIHYDRATE,  ) [Suspect]
     Indication: EAR INFECTION
     Dosage: 500MG X 3/D
     Route: 048
     Dates: start: 20020614, end: 20020615
  3. ACETAMINOPHEN [Suspect]
     Indication: PYREXIA
     Dosage: 140MG X4/D (ALTERNATING WITH CHILDREN'S ADVIL)
     Route: 048
     Dates: start: 20020613

REACTIONS (4)
  - CELLULITIS [None]
  - EYE OEDEMA [None]
  - EYE REDNESS [None]
  - RHINITIS [None]
